FAERS Safety Report 9172449 (Version 4)
Quarter: 2013Q4

REPORT INFORMATION
  Report Type: Report from Study
  Country: DE (occurrence: DE)
  Receive Date: 20130319
  Receipt Date: 20131202
  Transmission Date: 20140711
  Serious: Yes (Other)
  Sender: FDA-Public Use
  Company Number: DE-AMGEN-DEUCT2013017927

PATIENT
  Age: 36 Year
  Sex: Female

DRUGS (2)
  1. DENOSUMAB [Suspect]
     Indication: PRODUCT USED FOR UNKNOWN INDICATION
     Dosage: UNK
     Dates: start: 20120920
  2. L-THYROXIN [Concomitant]
     Dosage: UNK
     Dates: start: 2008

REACTIONS (2)
  - Benign hydatidiform mole [Recovered/Resolved]
  - Molar abortion [Recovered/Resolved]
